FAERS Safety Report 14277050 (Version 2)
Quarter: 2017Q4

REPORT INFORMATION
  Report Type: Spontaneous
  Country: BR (occurrence: BR)
  Receive Date: 20171212
  Receipt Date: 20171222
  Transmission Date: 20180321
  Serious: Yes (Other)
  Sender: FDA-Public Use
  Company Number: PHHY2017BR180766

PATIENT
  Sex: Male
  Weight: 28 kg

DRUGS (5)
  1. EUTHYROX [Concomitant]
     Active Substance: LEVOTHYROXINE SODIUM
     Indication: HORMONE THERAPY
     Dosage: 500 UG, QD
     Route: 048
  2. SABRIL [Concomitant]
     Active Substance: VIGABATRIN
     Indication: SEIZURE
     Dosage: 500 MG, QD
     Route: 048
     Dates: start: 2008
  3. PREDSIN [Concomitant]
     Active Substance: CHLORAMPHENICOL\PREDNISOLONE
     Indication: HORMONE THERAPY
     Dosage: 10 ML, QD
     Route: 048
  4. TEGRETOL [Suspect]
     Active Substance: CARBAMAZEPINE
     Indication: SEIZURE
     Dosage: 10 ML, TID
     Route: 048
     Dates: start: 2007
  5. TRILEPTAL [Suspect]
     Active Substance: OXCARBAZEPINE
     Indication: SEIZURE
     Dosage: 10 ML, TID
     Route: 048
     Dates: start: 2003, end: 2007

REACTIONS (11)
  - Cerebral disorder [Not Recovered/Not Resolved]
  - Choking [Not Recovered/Not Resolved]
  - Irritability [Not Recovered/Not Resolved]
  - Dysphagia [Not Recovered/Not Resolved]
  - Constipation [Unknown]
  - Exophthalmos [Unknown]
  - Erythema [Unknown]
  - Secretion discharge [Not Recovered/Not Resolved]
  - Blood sodium decreased [Recovered/Resolved]
  - Insomnia [Not Recovered/Not Resolved]
  - Oedema mouth [Unknown]

NARRATIVE: CASE EVENT DATE: 2013
